FAERS Safety Report 9172948 (Version 1)
Quarter: 2013Q1

REPORT INFORMATION
  Report Type: Spontaneous
  Country: GB (occurrence: GB)
  Receive Date: 20130320
  Receipt Date: 20130320
  Transmission Date: 20140127
  Serious: Yes (Other)
  Sender: FDA-Public Use
  Company Number: GB-MERCK-1303GBR008517

PATIENT
  Age: 56 Year
  Sex: Male
  Weight: 64 kg

DRUGS (12)
  1. JANUVIA [Suspect]
     Indication: RENAL FAILURE CHRONIC
     Dosage: 50 MG
     Route: 048
     Dates: start: 20130201, end: 20130211
  2. AMLODIPINE [Concomitant]
     Dosage: 5 MG
     Route: 048
     Dates: start: 20130102
  3. BISOPROLOL [Concomitant]
     Dosage: 1.25 MG
     Dates: start: 20121015
  4. CLOPIDOGREL [Concomitant]
     Dosage: 75 MG
     Dates: start: 20120920
  5. FUROSEMIDE [Concomitant]
     Dosage: 40 MG
     Route: 048
  6. GLICLAZIDE [Concomitant]
     Dosage: 80 MG, BID
  7. LEVOTHYROXINE SODIUM [Concomitant]
     Dosage: 100 MICROGRAM
  8. LISINOPRIL [Concomitant]
     Dosage: 20 MG
  9. OMEPRAZOLE [Concomitant]
     Dosage: 20 MG
  10. SIMVASTATIN [Concomitant]
     Dosage: 20 MG
  11. TRAMADOL HYDROCHLORIDE [Concomitant]
     Dosage: 50 MG
  12. ZOPICLONE [Concomitant]
     Dosage: 7.5 MG

REACTIONS (2)
  - Vasculitic rash [Recovered/Resolved]
  - Oedema peripheral [Recovered/Resolved]
